FAERS Safety Report 7694548-4 (Version None)
Quarter: 2011Q3

REPORT INFORMATION
  Report Type: 
  Country: None (occurrence: None)
  Receive Date: 20110819
  Receipt Date: 20101124
  Transmission Date: 20111222
  Serious: Yes (Other)
  Sender: FDA-Public Use
  Company Number: CA-AMGEN-QUU406335

PATIENT

DRUGS (5)
  1. ENBREL [Suspect]
     Indication: RHEUMATOID ARTHRITIS
  2. LEFLUNOMIDE [Concomitant]
     Indication: RHEUMATOID ARTHRITIS
     Dosage: 20 MG, QD
     Dates: start: 20091201, end: 20091209
  3. PLAQUENIL [Suspect]
     Dosage: 200 MG, UNK
     Dates: start: 20090918
  4. METHOTREXATE [Concomitant]
     Dosage: 25 MG, QWK
     Dates: start: 20090315
  5. ARAVA [Suspect]
     Dosage: 20 MG, UNK
     Dates: start: 20091201, end: 20091209

REACTIONS (3)
  - BREAST CANCER [None]
  - COLON CANCER [None]
  - LUNG NEOPLASM MALIGNANT [None]
